FAERS Safety Report 8717203 (Version 4)
Quarter: 2013Q2

REPORT INFORMATION
  Report Type: Report from Study
  Country: US (occurrence: US)
  Receive Date: 20120810
  Receipt Date: 20130527
  Transmission Date: 20140414
  Serious: Yes (Life-Threatening, Hospitalization, Other)
  Sender: FDA-Public Use
  Company Number: PHEH2012US015566

PATIENT
  Age: 71 Year
  Sex: Male
  Weight: 109.75 kg

DRUGS (14)
  1. TASIGNA [Suspect]
     Indication: CHRONIC MYELOID LEUKAEMIA
     Dosage: 300 MG, BID
     Route: 048
     Dates: start: 20120726, end: 20120730
  2. ATENOLOL [Concomitant]
     Dosage: 25 MG
  3. FELODIPINE [Concomitant]
     Dosage: 5 MG
  4. FINASTERIDE [Concomitant]
     Dosage: 1 MG
  5. FUROSEMIDE [Concomitant]
     Dosage: 20 MG
  6. LIVALO [Concomitant]
     Dosage: 1 MG
  7. OMEPRAZOLE [Concomitant]
     Dosage: 20 MG, UNK
  8. SLOW MAG [Concomitant]
  9. POTASSIUM [Concomitant]
     Dosage: 75 MG
  10. SPIRIVA HANDIHALER [Concomitant]
  11. TIKOSYN [Concomitant]
     Dosage: 125 UG
  12. TOVIAZ [Concomitant]
     Dosage: 4 MG
  13. TUSSICAPS [Concomitant]
     Dosage: 5 TO 4 MG
  14. STEROIDS NOS [Concomitant]

REACTIONS (20)
  - Pneumonitis [Recovering/Resolving]
  - Nausea [Recovering/Resolving]
  - Cough [Recovering/Resolving]
  - Dyspnoea [Recovering/Resolving]
  - Fatigue [Recovering/Resolving]
  - Malaise [Recovering/Resolving]
  - Acute respiratory failure [Recovering/Resolving]
  - Renal failure [Recovering/Resolving]
  - Atrial fibrillation [Unknown]
  - Pleural effusion [Unknown]
  - Respiratory distress [Unknown]
  - Lung disorder [Unknown]
  - Pyrexia [Unknown]
  - Hypoxia [Unknown]
  - Cardiac failure congestive [Unknown]
  - Coronary artery disease [Unknown]
  - Oedema peripheral [Unknown]
  - Arthritis [Unknown]
  - Hypertension [Unknown]
  - Weight decreased [Unknown]
